FAERS Safety Report 7809427-9 (Version None)
Quarter: 2011Q4

REPORT INFORMATION
  Report Type: 
  Country: None (occurrence: None)
  Receive Date: 20111007
  Receipt Date: 20110922
  Transmission Date: 20120403
  Serious: Yes (Other)
  Sender: FDA-Public Use
  Company Number: DSA_47783_2011

PATIENT
  Sex: Female

DRUGS (4)
  1. VENLAFAXINE [Concomitant]
  2. WELLBUTRIN XL [Suspect]
     Indication: PRODUCT USED FOR UNKNOWN INDICATION
     Dosage: (300 DAILY ORAL) ; (150 MG, DAILY ORAL)
     Route: 048
     Dates: start: 20110101
  3. WELLBUTRIN XL [Suspect]
     Indication: PRODUCT USED FOR UNKNOWN INDICATION
     Dosage: (300 DAILY ORAL) ; (150 MG, DAILY ORAL)
     Route: 048
     Dates: start: 20110101, end: 20110101
  4. QUETIAPINE [Concomitant]

REACTIONS (5)
  - SALIVARY HYPERSECRETION [None]
  - HYPOTENSION [None]
  - SOMNOLENCE [None]
  - TOXICITY TO VARIOUS AGENTS [None]
  - TACHYCARDIA [None]
